FAERS Safety Report 12237669 (Version 1)
Quarter: 2016Q2

REPORT INFORMATION
  Report Type: Spontaneous
  Country: US (occurrence: US)
  Receive Date: 20160405
  Receipt Date: 20160405
  Transmission Date: 20160815
  Serious: No
  Sender: FDA-Public Use
  Company Number: PHEH2016US007849

PATIENT
  Sex: Female

DRUGS (1)
  1. JADENU [Suspect]
     Active Substance: DEFERASIROX
     Indication: APLASTIC ANAEMIA
     Dosage: 14 MG/KG, QD
     Route: 048
     Dates: start: 20160120, end: 20160303

REACTIONS (2)
  - Arthralgia [Recovered/Resolved]
  - Malaise [Recovered/Resolved]
